FAERS Safety Report 11643442 (Version 1)
Quarter: 2015Q4

REPORT INFORMATION
  Report Type: Spontaneous
  Country: US (occurrence: None)
  Receive Date: 20151019
  Receipt Date: 20151019
  Transmission Date: 20160304
  Serious: Yes (Disabling)
  Sender: FDA-Public Use
  Company Number: None

PATIENT
  Age: 66 Year
  Sex: Female
  Weight: 164 kg

DRUGS (3)
  1. CALCIUM [Concomitant]
     Active Substance: CALCIUM
  2. ENYNOID (LEVOTHROID) [Concomitant]
  3. TRIAMCINOLONE ACETONIDE INJECTAB 5 ML KENALOG 40 [Suspect]
     Active Substance: TRIAMCINOLONE ACETONIDE
     Indication: ARTHRALGIA

REACTIONS (9)
  - Sciatica [None]
  - Arthropathy [None]
  - Headache [None]
  - Dizziness [None]
  - Anxiety [None]
  - Back pain [None]
  - Arthralgia [None]
  - Paraesthesia [None]
  - Muscle rupture [None]

NARRATIVE: CASE EVENT DATE: 20151005
